FAERS Safety Report 9059850 (Version 1)
Quarter: 2013Q1

REPORT INFORMATION
  Report Type: Report from Study
  Country: CA (occurrence: CA)
  Receive Date: 20130212
  Receipt Date: 20130212
  Transmission Date: 20140127
  Serious: Yes (Hospitalization)
  Sender: FDA-Public Use
  Company Number: CA-JNJFOC-20130200519

PATIENT
  Age: 47 None
  Sex: Female
  Weight: 57 kg

DRUGS (5)
  1. REMICADE [Suspect]
     Indication: CROHN^S DISEASE
     Route: 042
     Dates: start: 20100416, end: 20121214
  2. ANTIHYPERTENSIVES [Concomitant]
     Route: 065
  3. VASODILATORS [Concomitant]
     Route: 065
  4. COUMADIN [Concomitant]
     Route: 065
  5. ALL OTHER THERAPEUTICS [Concomitant]
     Route: 065

REACTIONS (1)
  - Infarction [Recovering/Resolving]
